FAERS Safety Report 21007578 (Version 2)
Quarter: 2022Q3

REPORT INFORMATION
  Report Type: Report from Study
  Country: NL (occurrence: NL)
  Receive Date: 20220626
  Receipt Date: 20220804
  Transmission Date: 20221026
  Serious: Yes (Other)
  Sender: FDA-Public Use
  Company Number: NL-NOVARTISPH-NVSC2022NL142350

PATIENT
  Sex: Female
  Weight: 66 kg

DRUGS (10)
  1. ACLASTA [Suspect]
     Active Substance: ZOLEDRONIC ACID
     Indication: Osteoporosis
     Dosage: 5 MG, Q12MO (1.00 X PER 52 WEEKS)
     Route: 042
     Dates: start: 20220411, end: 20220620
  2. PANTOPRAZOLE [Concomitant]
     Active Substance: PANTOPRAZOLE
     Indication: Product used for unknown indication
     Dosage: 40 MG, QD (1 PIECE)
     Route: 048
  3. FENOTEROL [Concomitant]
     Active Substance: FENOTEROL
     Indication: Product used for unknown indication
     Dosage: 50 UG, PRN (AEROSOL, 1 TO 2 DOSE/DO, AS NEEDED 4 X PER DAY)
     Route: 055
  4. IPRATROPIUM [Concomitant]
     Active Substance: IPRATROPIUM
     Indication: Product used for unknown indication
     Dosage: 20 UG, PRN (AEROSOL, 1 TO 2 DOSE/DO, AS NEEDED 4 X PER DAY)
     Route: 055
  5. SIMVASTATIN [Concomitant]
     Active Substance: SIMVASTATIN
     Indication: Product used for unknown indication
     Dosage: 20 MG, QD (1 PIECE IN THE EVENING)
     Route: 048
  6. RIVAROXABAN [Concomitant]
     Active Substance: RIVAROXABAN
     Indication: Pulmonary embolism
     Dosage: 10 MG, QD (1 PIECE OF MAINTENANCE TREATMENT)
     Route: 048
  7. TIOTROPIUM [Concomitant]
     Active Substance: TIOTROPIUM
     Indication: Product used for unknown indication
     Dosage: 2.5 UG, QD (RESPIMAT, 2 DOSES/ DO)
     Route: 055
  8. OLODATEROL [Concomitant]
     Active Substance: OLODATEROL
     Indication: Product used for unknown indication
     Dosage: 2.5 UG, QD (RESPIMAT, 2 DOSES/ DO)
     Route: 055
  9. ACETAMINOPHEN [Concomitant]
     Active Substance: ACETAMINOPHEN
     Indication: Product used for unknown indication
     Dosage: 1 G, QID
     Route: 048
  10. POLYETHYLENE GLYCOLS [Concomitant]
     Active Substance: POLYETHYLENE GLYCOLS
     Indication: Product used for unknown indication
     Dosage: UNK, BID (POWDER, 1 TO 2 X PER DAY 1 PIECE)
     Route: 048

REACTIONS (2)
  - Terminal state [Not Recovered/Not Resolved]
  - Lung neoplasm malignant [Not Recovered/Not Resolved]
